FAERS Safety Report 6896336-5 (Version None)
Quarter: 2010Q3

REPORT INFORMATION
  Report Type: 
  Country: None (occurrence: None)
  Receive Date: 20100728
  Receipt Date: 20100716
  Transmission Date: 20110219
  Serious: Yes (Other)
  Sender: FDA-Public Use
  Company Number: 2010PX0135

PATIENT
  Age: 31 Year
  Sex: Female
  Weight: 57.1532 kg

DRUGS (1)
  1. PRENATE ELITE [Suspect]
     Indication: PREGNANCY
     Dosage: 1 TABLET, ONCE DAILY
     Dates: start: 20100405, end: 20100409

REACTIONS (3)
  - ABORTION SPONTANEOUS [None]
  - DIARRHOEA [None]
  - DRUG EXPOSURE DURING PREGNANCY [None]
